FAERS Safety Report 9597461 (Version 1)
Quarter: 2013Q4

REPORT INFORMATION
  Report Type: Spontaneous
  Country: US (occurrence: US)
  Receive Date: 20131004
  Receipt Date: 20131004
  Transmission Date: 20140711
  Serious: No
  Sender: FDA-Public Use
  Company Number: US-AMGEN-USASP2013019444

PATIENT
  Age: 38 Year
  Sex: Female
  Weight: 112.47 kg

DRUGS (9)
  1. ENBREL [Suspect]
     Indication: PRODUCT USED FOR UNKNOWN INDICATION
     Dosage: 50 MG, QWK
     Route: 058
  2. LORATADINE [Concomitant]
     Dosage: 10 MG, UNK
  3. DOVONEX [Concomitant]
     Dosage: 0.005 %, UNK
  4. MULTIPLE VITAMINS [Concomitant]
     Dosage: UNK
  5. CHONDROGLUC [Concomitant]
     Dosage: UNK
  6. VITAMIIN C [Concomitant]
     Dosage: UNK
  7. VITAMIN D                          /00107901/ [Concomitant]
     Dosage: 1000 UNIT, UNK
  8. IBUPROFEN [Concomitant]
     Dosage: 200 MG, UNK
  9. HYDROCORT /00028604/ [Suspect]

REACTIONS (1)
  - Nasopharyngitis [Recovering/Resolving]
